FAERS Safety Report 21828528 (Version 1)
Quarter: 2023Q1

REPORT INFORMATION
  Report Type: Spontaneous
  Country: HR (occurrence: HR)
  Receive Date: 20230106
  Receipt Date: 20230106
  Transmission Date: 20230417
  Serious: Yes (Other)
  Sender: FDA-Public Use
  Company Number: None

PATIENT
  Age: 71 Year
  Sex: Female
  Weight: 67 kg

DRUGS (1)
  1. ELIQUIS [Suspect]
     Active Substance: APIXABAN
     Indication: Pulmonary embolism
     Route: 048
     Dates: start: 20220210, end: 20221127

REACTIONS (6)
  - Erythema [Recovering/Resolving]
  - Pain in extremity [Recovering/Resolving]
  - Constipation [Not Recovered/Not Resolved]
  - Blue toe syndrome [Recovering/Resolving]
  - Peripheral swelling [Recovering/Resolving]
  - Vasculitis [Recovering/Resolving]

NARRATIVE: CASE EVENT DATE: 20220210
